FAERS Safety Report 10067552 (Version 3)
Quarter: 2017Q1

REPORT INFORMATION
  Report Type: Spontaneous
  Country: JP (occurrence: JP)
  Receive Date: 20140409
  Receipt Date: 20170131
  Transmission Date: 20170428
  Serious: Yes (Life-Threatening, Other)
  Sender: FDA-Public Use
  Company Number: JP-ROCHE-1358542

PATIENT
  Age: 67 Year
  Sex: Male

DRUGS (14)
  1. HARNAL [Concomitant]
     Active Substance: TAMSULOSIN HYDROCHLORIDE
     Indication: URINARY RETENTION
     Route: 048
     Dates: start: 20130520
  2. RITUXIMAB [Suspect]
     Active Substance: RITUXIMAB
     Indication: HERPES VIRUS INFECTION
     Route: 042
     Dates: end: 20130711
  3. SAMTIREL [Concomitant]
     Active Substance: ATOVAQUONE
     Indication: HIV INFECTION
     Route: 065
     Dates: start: 20110419
  4. RITUXIMAB [Suspect]
     Active Substance: RITUXIMAB
     Indication: HIV TEST POSITIVE
     Route: 042
     Dates: end: 20130704
  5. RESTAMIN KOWA [Concomitant]
     Route: 048
     Dates: end: 20130704
  6. RISPERDAL [Concomitant]
     Active Substance: RISPERIDONE
     Indication: DEPRESSION
     Route: 048
     Dates: start: 20130502
  7. PARIET [Concomitant]
     Active Substance: RABEPRAZOLE SODIUM
     Indication: PROPHYLAXIS AGAINST GASTROINTESTINAL ULCER
     Route: 048
     Dates: start: 20120814
  8. RESTAMIN KOWA [Concomitant]
     Indication: PREMEDICATION
     Route: 048
     Dates: start: 20130627
  9. RESTAMIN KOWA [Concomitant]
     Route: 048
     Dates: end: 20130711
  10. ISENTRESS [Concomitant]
     Active Substance: RALTEGRAVIR POTASSIUM
     Indication: HIV INFECTION
     Route: 048
     Dates: start: 20110517
  11. SAMTIREL [Concomitant]
     Active Substance: ATOVAQUONE
     Route: 048
     Dates: start: 20130905
  12. RITUXIMAB [Suspect]
     Active Substance: RITUXIMAB
     Indication: CASTLEMAN^S DISEASE
     Dosage: 580 MG/BODY
     Route: 042
     Dates: end: 20130627
  13. EPZICOM [Concomitant]
     Active Substance: ABACAVIR SULFATE\LAMIVUDINE
     Indication: HIV INFECTION
     Route: 048
     Dates: start: 20110517
  14. WYPAX [Concomitant]
     Active Substance: LORAZEPAM
     Indication: DEPRESSION
     Route: 048
     Dates: start: 20130502

REACTIONS (4)
  - Sepsis [Recovering/Resolving]
  - Product use issue [Unknown]
  - Kaposi^s sarcoma [Recovering/Resolving]
  - Off label use [Unknown]

NARRATIVE: CASE EVENT DATE: 20130716
